FAERS Safety Report 7744249-9 (Version None)
Quarter: 2011Q3

REPORT INFORMATION
  Report Type: 
  Country: None (occurrence: None)
  Receive Date: 20110912
  Receipt Date: 20110908
  Transmission Date: 20111222
  Serious: Yes (Death, Disabling)
  Sender: FDA-Public Use
  Company Number: PHHY2011GB42928

PATIENT
  Age: 49 Year
  Sex: Female
  Weight: 69.4 kg

DRUGS (5)
  1. AVASTIN [Suspect]
     Indication: PALLIATIVE CARE
     Dosage: 1000 MG/ 3WEEKS
     Route: 042
     Dates: start: 20110106, end: 20110211
  2. DEXAMETHASONE [Concomitant]
     Dates: start: 20101216, end: 20110211
  3. LANSOPRAZOLE [Concomitant]
     Indication: DYSPEPSIA
     Dosage: 30MG/ AS NECESSARY
     Route: 048
     Dates: start: 20101001
  4. XELODA [Suspect]
     Indication: PALLIATIVE CARE
     Dosage: 2300 MG, UNK
     Route: 048
     Dates: start: 20110217, end: 20110428
  5. DOCETAXEL [Suspect]
     Indication: PALLIATIVE CARE
     Dosage: 180 MG/ 3 WEEKS
     Route: 042
     Dates: start: 20101216, end: 20110211

REACTIONS (3)
  - DEATH [None]
  - PALMAR-PLANTAR ERYTHRODYSAESTHESIA SYNDROME [None]
  - PIGMENTATION DISORDER [None]
